FAERS Safety Report 13848105 (Version 1)
Quarter: 2017Q3

REPORT INFORMATION
  Report Type: Spontaneous
  Country: US (occurrence: US)
  Receive Date: 20170809
  Receipt Date: 20170809
  Transmission Date: 20171127
  Serious: Yes (Other)
  Sender: FDA-Public Use
  Company Number: US-MUNDIPHARMA DS AND PHARMACOVIGILANCE-USA-2017-0138295

PATIENT
  Age: 48 Year
  Sex: Male

DRUGS (3)
  1. BUTRANS [Suspect]
     Active Substance: BUPRENORPHINE
     Indication: PAIN
     Dosage: 15 MCG/HR, WEEKLY
     Route: 062
     Dates: start: 201702
  2. BUTRANS [Suspect]
     Active Substance: BUPRENORPHINE
     Dosage: 20 MCG/HR, WEEKLY
     Route: 062
     Dates: start: 201702
  3. BUTRANS [Suspect]
     Active Substance: BUPRENORPHINE
     Dosage: 40 MCG/HR (20 MCG/HR PATCHES X 2), WEEKLY
     Route: 062
     Dates: start: 201702

REACTIONS (4)
  - Hyperhidrosis [Unknown]
  - Drug effect decreased [Not Recovered/Not Resolved]
  - Overdose [Not Recovered/Not Resolved]
  - Product adhesion issue [Unknown]

NARRATIVE: CASE EVENT DATE: 201702
